FAERS Safety Report 8564044-0 (Version None)
Quarter: 2012Q3

REPORT INFORMATION
  Report Type: 
  Country: None (occurrence: None)
  Receive Date: 20120723
  Receipt Date: 20120703
  Transmission Date: 20120928
  Serious: Yes (Hospitalization)
  Sender: FDA-Public Use
  Company Number: JPI-P-022350

PATIENT
  Age: 60 Year
  Sex: Female
  Weight: 65.7716 kg

DRUGS (2)
  1. TRETINOIN [Suspect]
     Indication: EPHELIDES
     Dates: end: 20120510
  2. XYREM [Suspect]
     Indication: CATAPLEXY
     Dosage: (UNKNOWN) ORAL, 9 GM (4.5 GM, 2 IN 1 D), ORAL
     Route: 048
     Dates: start: 20060301

REACTIONS (7)
  - RECTAL PROLAPSE [None]
  - FALL [None]
  - IRRITABLE BOWEL SYNDROME [None]
  - ABDOMINAL PAIN UPPER [None]
  - DIVERTICULITIS [None]
  - POLLAKIURIA [None]
  - COELIAC DISEASE [None]
